FAERS Safety Report 14623549 (Version 1)
Quarter: 2018Q1

REPORT INFORMATION
  Report Type: Spontaneous
  Country: PT (occurrence: PT)
  Receive Date: 20180312
  Receipt Date: 20180312
  Transmission Date: 20180509
  Serious: Yes (Life-Threatening, Hospitalization, Other)
  Sender: FDA-Public Use
  Company Number: PT-AUROBINDO-AUR-APL-2018-001987

PATIENT
  Age: 69 Year
  Sex: Male

DRUGS (1)
  1. CLOPIDOGREL [Suspect]
     Active Substance: CLOPIDOGREL BISULFATE
     Indication: CORONARY ARTERY DISEASE
     Dosage: ()

REACTIONS (3)
  - Haemodynamic instability [Recovered/Resolved]
  - Haematochezia [Recovered/Resolved]
  - Diverticulum intestinal haemorrhagic [Recovered/Resolved]
